FAERS Safety Report 20589789 (Version 2)
Quarter: 2022Q1

REPORT INFORMATION
  Report Type: Report from Study
  Country: AT (occurrence: AT)
  Receive Date: 20220314
  Receipt Date: 20220325
  Transmission Date: 20220423
  Serious: Yes (Hospitalization, Other)
  Sender: FDA-Public Use
  Company Number: AT-BAYER-2022A036725

PATIENT
  Age: 52 Year
  Sex: Female

DRUGS (1)
  1. MIRENA [Suspect]
     Active Substance: LEVONORGESTREL
     Dosage: 20?G/DAY
     Route: 015
     Dates: start: 202107, end: 202202

REACTIONS (2)
  - Endometrial cancer [None]
  - Genital haemorrhage [None]

NARRATIVE: CASE EVENT DATE: 20210701
